FAERS Safety Report 9871857 (Version 2)
Quarter: 2014Q1

REPORT INFORMATION
  Report Type: Spontaneous
  Country: US (occurrence: US)
  Receive Date: 20140205
  Receipt Date: 20140205
  Transmission Date: 20141002
  Serious: Yes (Hospitalization)
  Sender: FDA-Public Use
  Company Number: US-B.I. PHARMACEUTICALS,INC./RIDGEFIELD-2013-BI-23015BP

PATIENT
  Age: 77 Year
  Sex: Female
  Weight: 53.07 kg

DRUGS (14)
  1. PRADAXA [Suspect]
     Indication: PRODUCT USED FOR UNKNOWN INDICATION
     Dates: start: 20110521, end: 20130203
  2. BUMEX [Concomitant]
     Route: 048
  3. CARAFATE [Concomitant]
     Route: 048
  4. DILTIA XT [Concomitant]
     Dosage: 120 MG
     Route: 048
  5. NEURONTIN [Concomitant]
     Dosage: 800 MG
     Route: 048
  6. SPIRIVA [Concomitant]
     Dosage: 18 MCG
     Route: 055
  7. SYMBICORT [Concomitant]
     Dosage: 4 PUF
     Route: 055
  8. TEKTURNA [Concomitant]
     Dosage: 25 MG
     Route: 048
  9. VITAMIN C [Concomitant]
     Route: 048
  10. CITALOPRAM [Concomitant]
     Route: 048
  11. FERROUS GLUCONATE [Concomitant]
     Route: 048
  12. FOLIC ACID [Concomitant]
     Route: 048
  13. OMEPRAZOLE [Concomitant]
     Route: 048
  14. ZOLPIDEM [Concomitant]
     Route: 048

REACTIONS (3)
  - Lower gastrointestinal haemorrhage [Recovered/Resolved]
  - Prothrombin time prolonged [Unknown]
  - International normalised ratio increased [Unknown]
